FAERS Safety Report 7998409 (Version 3)
Quarter: 2013Q2

REPORT INFORMATION
  Report Type: Spontaneous
  Country: US (occurrence: US)
  Receive Date: 20110620
  Receipt Date: 20130423
  Transmission Date: 20140414
  Serious: Yes (Other)
  Sender: FDA-Public Use
  Company Number: US-US-EMD SERONO, INC.-7064444

PATIENT
  Sex: Female

DRUGS (1)
  1. REBIF [Suspect]
     Indication: MULTIPLE SCLEROSIS
     Route: 058
     Dates: start: 20070501

REACTIONS (5)
  - Osteoarthritis [Recovering/Resolving]
  - Ligament rupture [Unknown]
  - Nerve root compression [Not Recovered/Not Resolved]
  - Scoliosis [Unknown]
  - Fall [Unknown]
